FAERS Safety Report 21344703 (Version 1)
Quarter: 2022Q3

REPORT INFORMATION
  Report Type: Report from Study
  Country: US (occurrence: US)
  Receive Date: 20220916
  Receipt Date: 20220916
  Transmission Date: 20221026
  Serious: Yes (Other)
  Sender: FDA-Public Use
  Company Number: US-TAKEDA-US202021069

PATIENT
  Age: 44 Year
  Sex: Male

DRUGS (12)
  1. TEDUGLUTIDE [Suspect]
     Active Substance: TEDUGLUTIDE
     Indication: Short-bowel syndrome
     Dosage: 3.80 MILLIGRAM, QD
     Route: 042
     Dates: start: 20130329, end: 20190721
  2. TEDUGLUTIDE [Suspect]
     Active Substance: TEDUGLUTIDE
     Indication: Short-bowel syndrome
     Dosage: 3.80 MILLIGRAM, QD
     Route: 042
     Dates: start: 20130329, end: 20190721
  3. TEDUGLUTIDE [Suspect]
     Active Substance: TEDUGLUTIDE
     Indication: Short-bowel syndrome
     Dosage: 3.80 MILLIGRAM, QD
     Route: 042
     Dates: start: 20130329, end: 20190721
  4. TEDUGLUTIDE [Suspect]
     Active Substance: TEDUGLUTIDE
     Indication: Short-bowel syndrome
     Dosage: 3.80 MILLIGRAM, QD
     Route: 042
     Dates: start: 20130329, end: 20190721
  5. TEDUGLUTIDE [Suspect]
     Active Substance: TEDUGLUTIDE
     Dosage: 3.80 MILLIGRAM, QD
     Route: 042
     Dates: start: 20190728
  6. TEDUGLUTIDE [Suspect]
     Active Substance: TEDUGLUTIDE
     Dosage: 3.80 MILLIGRAM, QD
     Route: 042
     Dates: start: 20190728
  7. TEDUGLUTIDE [Suspect]
     Active Substance: TEDUGLUTIDE
     Dosage: 3.80 MILLIGRAM, QD
     Route: 042
     Dates: start: 20190728
  8. TEDUGLUTIDE [Suspect]
     Active Substance: TEDUGLUTIDE
     Dosage: 3.80 MILLIGRAM, QD
     Route: 042
     Dates: start: 20190728
  9. AZITHROMYCIN [Concomitant]
     Active Substance: AZITHROMYCIN
     Indication: Pneumonia
     Dosage: 500 MILLIGRAM, SINGLE
     Route: 048
     Dates: start: 20220317, end: 20220317
  10. AZITHROMYCIN [Concomitant]
     Active Substance: AZITHROMYCIN
     Dosage: 250 MILLIGRAM, QD
     Route: 048
     Dates: start: 20220318, end: 20220321
  11. ALBUTEROL [Concomitant]
     Active Substance: ALBUTEROL
     Indication: Pneumonia
     Dosage: 2 DOSAGE FORM
     Route: 055
     Dates: start: 20220317, end: 20220328
  12. POSACONAZOLE [Concomitant]
     Active Substance: POSACONAZOLE
     Indication: Coccidioidomycosis
     Dosage: 300 MILLIGRAM, QD
     Route: 048
     Dates: start: 20200623, end: 2021

REACTIONS (2)
  - Pneumonia [Recovered/Resolved]
  - Bronchitis [Recovered/Resolved]

NARRATIVE: CASE EVENT DATE: 20191201
